FAERS Safety Report 9728228 (Version 1)
Quarter: 2013Q4

REPORT INFORMATION
  Report Type: Spontaneous
  Country: FR (occurrence: FR)
  Receive Date: 20131204
  Receipt Date: 20131204
  Transmission Date: 20140711
  Serious: Yes (Hospitalization)
  Sender: FDA-Public Use
  Company Number: FR-JNJFOC-20131116650

PATIENT
  Age: 80 Year
  Sex: Male

DRUGS (5)
  1. REMINYL [Suspect]
     Indication: COGNITIVE DISORDER
     Route: 048
     Dates: start: 20130805, end: 20131009
  2. PERINDOPRIL [Concomitant]
     Indication: HYPERTENSION
     Dosage: 1-0-0
     Route: 065
  3. METFORMINE [Concomitant]
     Indication: DIABETES MELLITUS
     Dosage: 1-0-1
     Route: 065
  4. ATORVASTATIN [Concomitant]
     Indication: DYSLIPIDAEMIA
     Dosage: 0-0-1
     Route: 065
  5. TAMSULOSIN [Concomitant]
     Indication: BENIGN PROSTATIC HYPERPLASIA
     Dosage: 1-0-0
     Route: 065

REACTIONS (2)
  - Atrial fibrillation [Recovering/Resolving]
  - Renal disorder [Unknown]
